FAERS Safety Report 21344599 (Version 1)
Quarter: 2022Q3

REPORT INFORMATION
  Report Type: Spontaneous
  Country: US (occurrence: US)
  Receive Date: 20220916
  Receipt Date: 20220916
  Transmission Date: 20221027
  Serious: No
  Sender: FDA-Public Use
  Company Number: US-NOVEN PHARMACEUTICALS, INC.-2022-NOV-US000605

PATIENT
  Age: 41 Year
  Sex: Female

DRUGS (2)
  1. COMBIPATCH [Suspect]
     Active Substance: ESTRADIOL\NORETHINDRONE ACETATE
     Indication: Hormone replacement therapy
     Dosage: 0.05/0.25 MG, UNKNOWN
     Route: 062
     Dates: start: 20220627
  2. COMBIPATCH [Suspect]
     Active Substance: ESTRADIOL\NORETHINDRONE ACETATE
     Dosage: 0.05/0.14 MG, UNKNOWN
     Route: 062
     Dates: start: 202206, end: 20220627

REACTIONS (1)
  - Decreased appetite [Unknown]

NARRATIVE: CASE EVENT DATE: 20220601
